FAERS Safety Report 22382869 (Version 1)
Quarter: 2023Q2

REPORT INFORMATION
  Report Type: Spontaneous
  Country: US (occurrence: US)
  Receive Date: 20230530
  Receipt Date: 20230530
  Transmission Date: 20230722
  Serious: Yes (Other)
  Sender: FDA-Public Use
  Company Number: US-BAYER-2023A070382

PATIENT
  Age: 56 Year
  Sex: Male

DRUGS (2)
  1. GADAVIST [Suspect]
     Active Substance: GADOBUTROL
     Indication: Magnetic resonance imaging pelvic
     Dosage: 9 ML, ONCE
     Dates: start: 20230501, end: 20230501
  2. IBUPROFEN [Concomitant]
     Active Substance: IBUPROFEN
     Indication: Headache

REACTIONS (12)
  - Headache [None]
  - Neck pain [None]
  - Night sweats [None]
  - Chills [None]
  - Pain in extremity [None]
  - Nausea [None]
  - Vomiting [None]
  - Blindness [None]
  - Erectile dysfunction [None]
  - Brain fog [None]
  - Fatigue [None]
  - Tinnitus [None]

NARRATIVE: CASE EVENT DATE: 20230501
